FAERS Safety Report 9434520 (Version 3)
Quarter: 2013Q3

REPORT INFORMATION
  Report Type: Spontaneous
  Country: US (occurrence: US)
  Receive Date: 20130801
  Receipt Date: 20130830
  Transmission Date: 20140515
  Serious: No
  Sender: FDA-Public Use
  Company Number: US-PFIZER INC-2013221015

PATIENT
  Age: 57 Year
  Sex: Female

DRUGS (19)
  1. MEDROL [Suspect]
     Dosage: UNK
     Dates: start: 20130618, end: 20130623
  2. GATTEX [Suspect]
     Indication: SHORT-BOWEL SYNDROME
     Dosage: 0.38 ML, 1X/DAY (QD)
     Route: 058
     Dates: start: 20130610, end: 20130717
  3. GATTEX [Suspect]
     Dosage: UNK
     Dates: start: 20130724, end: 20130807
  4. PREDNISONE [Suspect]
     Indication: DERMATITIS CONTACT
     Dosage: UNK
  5. DILAUDID [Concomitant]
     Dosage: UNK
     Dates: start: 20130526, end: 20130610
  6. LOVENOX [Concomitant]
     Dosage: UNK
     Dates: start: 20130526, end: 20130615
  7. HYDROCODONE [Concomitant]
     Dosage: UNK
     Dates: start: 20130530, end: 20130630
  8. METRONIDAZOLE [Concomitant]
     Dosage: UNK
     Dates: start: 201203
  9. VITAMIN B12 [Concomitant]
     Dosage: UNK
     Dates: start: 201203
  10. COLESTYRAMINE [Concomitant]
     Dosage: UNK
     Dates: start: 201203
  11. CODEINE SULFATE [Concomitant]
     Dosage: UNK
     Dates: start: 201203
  12. VITAMIN D3 [Concomitant]
     Dosage: UNK
     Dates: start: 201203
  13. VENLAFAXINE [Concomitant]
     Dosage: UNK
     Dates: start: 201203
  14. IMODIUM [Concomitant]
     Dosage: UNK
     Dates: start: 201203
  15. PANTOPRAZOLE [Concomitant]
     Dosage: UNK
     Dates: start: 201203
  16. FOLIC ACID [Concomitant]
     Dosage: UNK
     Dates: start: 201203
  17. ATORVASTATIN [Concomitant]
     Dosage: UNK
     Dates: start: 200811
  18. LOSARTAN [Concomitant]
     Dosage: UNK
     Dates: start: 200811
  19. AQUADEKS [Concomitant]
     Dosage: UNK
     Dates: start: 201203

REACTIONS (4)
  - Abdominal pain [Unknown]
  - Abdominal discomfort [Unknown]
  - Back pain [Unknown]
  - Constipation [Recovered/Resolved]
